FAERS Safety Report 8921053 (Version 1)
Quarter: 2012Q4

REPORT INFORMATION
  Report Type: 
  Country: BR (occurrence: BR)
  Receive Date: 20121123
  Receipt Date: 20121123
  Transmission Date: 20130627
  Serious: Yes (Other)
  Sender: FDA-Public Use
  Company Number: BR-AMGEN-BRASP2012066362

PATIENT
  Age: 39 Year
  Sex: Male
  Weight: 104 kg

DRUGS (4)
  1. ENBREL [Suspect]
     Indication: ANKYLOSING SPONDYLITIS
     Dosage: unspecified dose, weekly
     Route: 058
     Dates: start: 2012, end: 20121010
  2. CLONAZEPAM [Concomitant]
     Dosage: strength 2mg
  3. BACLOFEN [Concomitant]
     Dosage: UNK
  4. IBUPROFEN [Concomitant]
     Dosage: UNK

REACTIONS (2)
  - Neuropathy peripheral [Recovered/Resolved]
  - Oedema peripheral [Recovered/Resolved]
